FAERS Safety Report 8314870-8 (Version None)
Quarter: 2012Q2

REPORT INFORMATION
  Report Type: 
  Country: None (occurrence: None)
  Receive Date: 20120426
  Receipt Date: 20120305
  Transmission Date: 20120825
  Serious: No
  Sender: FDA-Public Use
  Company Number: US-MYLANLABS-2012S1004944

PATIENT
  Age: 80 Year
  Sex: Female

DRUGS (6)
  1. COZAAR [Concomitant]
     Indication: BLOOD PRESSURE INCREASED
     Route: 048
  2. CLONIDINE [Concomitant]
     Indication: BLOOD PRESSURE INCREASED
     Route: 048
  3. CLONIDINE [Suspect]
     Indication: BLOOD PRESSURE INCREASED
     Route: 062
  4. CLONIDINE HCL [Concomitant]
     Indication: BLOOD PRESSURE INCREASED
     Dosage: ORALLY DISINTERGRATING
     Route: 048
  5. ATENOLOL [Concomitant]
     Indication: BLOOD PRESSURE INCREASED
     Route: 048
  6. HYDRALAZINE HCL [Concomitant]
     Indication: BLOOD PRESSURE INCREASED
     Route: 048

REACTIONS (2)
  - DRUG INEFFECTIVE [None]
  - BLOOD PRESSURE INCREASED [None]
